FAERS Safety Report 21459266 (Version 1)
Quarter: 2022Q4

REPORT INFORMATION
  Report Type: Spontaneous
  Country: US (occurrence: US)
  Receive Date: 20221014
  Receipt Date: 20221014
  Transmission Date: 20230112
  Serious: No
  Sender: FDA-Public Use
  Company Number: US-SA-SAC20221012000555

PATIENT
  Age: 46 Year
  Sex: Female

DRUGS (3)
  1. DUPIXENT [Suspect]
     Active Substance: DUPILUMAB
     Indication: Essential hypertension
     Dosage: 300 MG, QOW
     Route: 058
     Dates: start: 20211225
  2. FLUTICASONE [Concomitant]
     Active Substance: FLUTICASONE
  3. LOSARTAN POTASSIUM [Concomitant]
     Active Substance: LOSARTAN POTASSIUM

REACTIONS (4)
  - Pruritus [Not Recovered/Not Resolved]
  - Middle insomnia [Not Recovered/Not Resolved]
  - Rash [Not Recovered/Not Resolved]
  - Product use in unapproved indication [Unknown]

NARRATIVE: CASE EVENT DATE: 20211225
